FAERS Safety Report 9391354 (Version 2)
Quarter: 2013Q3

REPORT INFORMATION
  Report Type: Spontaneous
  Country: FR (occurrence: FR)
  Receive Date: 20130709
  Receipt Date: 20130918
  Transmission Date: 20140515
  Serious: Yes (Hospitalization)
  Sender: FDA-Public Use
  Company Number: FR-TEVA-416916ISR

PATIENT
  Age: 79 Year
  Sex: Male
  Weight: 74 kg

DRUGS (4)
  1. FUROSEMIDE TEVA 40 MG [Suspect]
     Indication: CARDIOMYOPATHY
     Dosage: 2 DOSAGE FORMS DAILY; SCORED TABLET. ONE TABLET IN THE MORNING AND ONE AT NOON
     Route: 048
     Dates: end: 20130524
  2. SPIRONOLACTONE 50 MG [Concomitant]
     Indication: HYPERTENSION
     Dates: end: 20130524
  3. KARDEGIC 75 MG [Concomitant]
     Dates: end: 20130524
  4. METFORMIN 1000 MG [Concomitant]
     Indication: DIABETES MELLITUS
     Dates: end: 20130524

REACTIONS (5)
  - Malaise [Recovering/Resolving]
  - Dyspnoea [Recovering/Resolving]
  - Blood test abnormal [Recovering/Resolving]
  - Fatigue [Recovering/Resolving]
  - Cyanosis [Recovering/Resolving]
